FAERS Safety Report 23142953 (Version 4)
Quarter: 2023Q4

REPORT INFORMATION
  Report Type: Report from Study
  Country: US (occurrence: US)
  Receive Date: 20231103
  Receipt Date: 20231204
  Transmission Date: 20240110
  Serious: Yes (Other)
  Sender: FDA-Public Use
  Company Number: US-UCBSA-2023051413

PATIENT
  Age: 84 Year
  Sex: Female
  Weight: 70.306 kg

DRUGS (2)
  1. BRIVARACETAM [Suspect]
     Active Substance: BRIVARACETAM
     Indication: Seizure
     Dosage: 50 MILLIGRAM
  2. BRIVARACETAM [Suspect]
     Active Substance: BRIVARACETAM
     Dosage: 75 MILLIGRAM, 2X/DAY (BID)

REACTIONS (3)
  - Seizure [Recovered/Resolved]
  - Product prescribing error [Unknown]
  - Wrong technique in product usage process [Unknown]

NARRATIVE: CASE EVENT DATE: 20230831
